FAERS Safety Report 7913261-9 (Version None)
Quarter: 2011Q4

REPORT INFORMATION
  Report Type: 
  Country: None (occurrence: None)
  Receive Date: 20111114
  Receipt Date: 20111110
  Transmission Date: 20120403
  Serious: Yes (Death, Hospitalization)
  Sender: FDA-Public Use
  Company Number: US-B.I. PHARMACEUTICALS,INC./RIDGEFIELD-2011-BP-24491BP

PATIENT
  Sex: Male
  Weight: 120.5 kg

DRUGS (9)
  1. ASPIRIN [Concomitant]
     Indication: CEREBROVASCULAR ACCIDENT PROPHYLAXIS
  2. VERAPAMIL [Concomitant]
     Dosage: 240 MG
     Route: 048
  3. DIGOXIN [Concomitant]
     Dosage: 125 MCG
     Route: 048
  4. ALLOPURINOL [Concomitant]
     Dosage: 100 MG
     Route: 048
  5. PRADAXA [Suspect]
     Indication: ATRIAL FIBRILLATION
     Dosage: 300 MG
     Dates: start: 20101001, end: 20110913
  6. LISINOPRIL [Concomitant]
     Dosage: 40 MG
     Route: 048
  7. MACROBID [Concomitant]
     Dosage: 200 MG
     Route: 048
  8. SIMVASTATIN [Concomitant]
     Indication: HYPERLIPIDAEMIA
     Dosage: 40 MG
     Route: 048
  9. ASPIRIN [Concomitant]
     Indication: CARDIOVASCULAR EVENT PROPHYLAXIS
     Dosage: 81 MG
     Route: 048

REACTIONS (3)
  - CEREBROVASCULAR ACCIDENT [None]
  - HAEMORRHAGIC TRANSFORMATION STROKE [None]
  - HAEMORRHAGIC CEREBRAL INFARCTION [None]
